FAERS Safety Report 4554655-1 (Version None)
Quarter: 2004Q4

REPORT INFORMATION
  Report Type: 
  Country: None (occurrence: None)
  Receive Date: 20041227
  Receipt Date: 20040901
  Transmission Date: 20050328
  Serious: No
  Sender: FDA-Public Use
  Company Number: US089253

PATIENT
  Age: 52 Year
  Sex: Female

DRUGS (2)
  1. SENSIPAR [Suspect]
     Indication: HYPERPARATHYROIDISM SECONDARY
     Dosage: 30 MG, 1 IN1 DAYS, PO
     Route: 048
     Dates: start: 20040801
  2. EPOGEN [Concomitant]

REACTIONS (1)
  - NAUSEA [None]
